FAERS Safety Report 12863098 (Version 1)
Quarter: 2016Q4

REPORT INFORMATION
  Report Type: Spontaneous
  Country: FR (occurrence: FR)
  Receive Date: 20161019
  Receipt Date: 20161019
  Transmission Date: 20170207
  Serious: Yes (Hospitalization, Other)
  Sender: FDA-Public Use
  Company Number: FR-ELI_LILLY_AND_COMPANY-FR201610002208

PATIENT
  Age: 96 Year
  Sex: Male

DRUGS (8)
  1. REPAGLINIDE. [Suspect]
     Active Substance: REPAGLINIDE
     Indication: PRODUCT USED FOR UNKNOWN INDICATION
     Dosage: 1 DF, TID
     Route: 048
     Dates: start: 201606, end: 20160724
  2. UMULINE [Suspect]
     Active Substance: INSULIN HUMAN
     Indication: INSULIN-REQUIRING TYPE 2 DIABETES MELLITUS
     Dosage: UNK, UNKNOWN
     Route: 058
     Dates: start: 201602, end: 20160724
  3. SERESTA [Concomitant]
     Active Substance: OXAZEPAM
     Dosage: 0.5 DF, BID
  4. PLAVIX [Concomitant]
     Active Substance: CLOPIDOGREL BISULFATE
     Dosage: 1 DF, QD
     Route: 048
  5. MOVICOL [Concomitant]
     Active Substance: POLYETHYLENE GLYCOL 3350\POTASSIUM CHLORIDE\SODIUM BICARBONATE\SODIUM CHLORIDE
     Route: 048
  6. XATRAL [Concomitant]
     Active Substance: ALFUZOSIN
     Dosage: 1 DF, QD
     Route: 048
  7. RISPERIDONA [Concomitant]
     Active Substance: RISPERIDONE
     Route: 048
  8. DOLIPRANE [Concomitant]
     Active Substance: ACETAMINOPHEN
     Dosage: UNK, PRN
     Route: 048

REACTIONS (7)
  - Hypoglycaemic coma [Unknown]
  - Hallucination [Unknown]
  - Hypoglycaemic seizure [Recovered/Resolved]
  - C-reactive protein increased [Unknown]
  - Hypotension [Unknown]
  - Blood glucose increased [Unknown]
  - Dementia [Unknown]

NARRATIVE: CASE EVENT DATE: 20160724
